FAERS Safety Report 16625403 (Version 4)
Quarter: 2019Q3

REPORT INFORMATION
  Report Type: Spontaneous
  Country: US (occurrence: US)
  Receive Date: 20190724
  Receipt Date: 20190927
  Transmission Date: 20191004
  Serious: No
  Sender: FDA-Public Use
  Company Number: US-PFIZER INC-2019266046

PATIENT
  Age: 47 Year
  Sex: Female
  Weight: 68.48 kg

DRUGS (5)
  1. LYRICA [Suspect]
     Active Substance: PREGABALIN
     Indication: FIBROMYALGIA
     Dosage: 50 MG, 2X/DAY, (ONE IN MORNING AND ONE AT NIGHT)
     Route: 048
     Dates: start: 2017
  2. LYRICA [Suspect]
     Active Substance: PREGABALIN
     Dosage: 75 MG, 2X/DAY, (TAKE ONE IN MORNING AND ONE AT NIGHT)
     Route: 048
  3. LYRICA [Suspect]
     Active Substance: PREGABALIN
     Indication: NEUROPATHY PERIPHERAL
     Dosage: 100 MG, 1X/DAY (TWO CAPSULE IN THE MORNING)
     Route: 048
     Dates: start: 20180123
  4. LYRICA [Suspect]
     Active Substance: PREGABALIN
     Dosage: 50 MG, 3X/DAY (ALSO SOUNDS LIKE MAYBE 4 TIMES A DAY)
  5. LYRICA [Suspect]
     Active Substance: PREGABALIN
     Dosage: 300 MG, 2X/DAY(ONCE IN THE MORNING AND ONCE AT NIGHT )
     Route: 048

REACTIONS (5)
  - Withdrawal syndrome [Unknown]
  - Somnolence [Unknown]
  - Weight increased [Not Recovered/Not Resolved]
  - Product prescribing error [Unknown]
  - Fatigue [Unknown]

NARRATIVE: CASE EVENT DATE: 201909
